FAERS Safety Report 5904275-9 (Version None)
Quarter: 2008Q3

REPORT INFORMATION
  Report Type: 
  Country: None (occurrence: None)
  Receive Date: 20080930
  Receipt Date: 20080930
  Transmission Date: 20090109
  Serious: Yes (Other)
  Sender: FDA-Public Use
  Company Number: None

PATIENT
  Age: 48 Year
  Sex: Male
  Weight: 79.3795 kg

DRUGS (3)
  1. SEROQUEL [Suspect]
     Indication: ANXIETY
     Dosage: 100MG TWICE DAILY, PM PO
     Route: 048
     Dates: start: 20030101, end: 20080901
  2. SEROQUEL [Suspect]
     Indication: SCHIZOPHRENIA
     Dosage: 100MG TWICE DAILY, PM PO
     Route: 048
     Dates: start: 20030101, end: 20080901
  3. SEROQUEL [Suspect]
     Indication: SLEEP DISORDER
     Dosage: 100MG TWICE DAILY, PM PO
     Route: 048
     Dates: start: 20030101, end: 20080901

REACTIONS (12)
  - DRUG ADMINISTRATION ERROR [None]
  - GASTROINTESTINAL DISORDER [None]
  - HALLUCINATION [None]
  - IMPAIRED DRIVING ABILITY [None]
  - MOTOR DYSFUNCTION [None]
  - NAUSEA [None]
  - REBOUND EFFECT [None]
  - SLEEP DISORDER [None]
  - TREMOR [None]
  - VISION BLURRED [None]
  - VOMITING [None]
  - WEIGHT INCREASED [None]
